FAERS Safety Report 20465711 (Version 2)
Quarter: 2022Q1

REPORT INFORMATION
  Report Type: Spontaneous
  Country: DE (occurrence: DE)
  Receive Date: 20220212
  Receipt Date: 20220224
  Transmission Date: 20220423
  Serious: Yes (Other)
  Sender: FDA-Public Use
  Company Number: DE-NOVARTISPH-NVSC2019DE021605

PATIENT
  Sex: Female

DRUGS (8)
  1. VALSARTAN [Suspect]
     Active Substance: VALSARTAN
     Indication: Hypertension
     Dosage: 1.5 DF, QD
     Route: 065
     Dates: start: 201203, end: 201807
  2. VALSARTAN [Suspect]
     Active Substance: VALSARTAN
     Dosage: UNK, 160 MG ONE TABLET IN THE MORNING, HALF OF A TABLET IN THE EVENING (1-0-1/2)
     Route: 065
     Dates: start: 201505
  3. VALSARTAN [Suspect]
     Active Substance: VALSARTAN
     Dosage: 1.5 DF, QD
     Route: 065
     Dates: end: 201905
  4. ASPIRIN [Concomitant]
     Active Substance: ASPIRIN
     Indication: Product used for unknown indication
     Dosage: UNK
     Route: 065
  5. SIMVASTATIN [Concomitant]
     Active Substance: SIMVASTATIN
     Indication: Product used for unknown indication
     Dosage: UNK
     Route: 065
  6. EUTHYROX [Concomitant]
     Active Substance: LEVOTHYROXINE SODIUM
     Indication: Product used for unknown indication
     Dosage: UNK
     Route: 065
  7. JANUVIA [Concomitant]
     Active Substance: SITAGLIPTIN PHOSPHATE
     Indication: Product used for unknown indication
     Dosage: UNK
     Route: 065
  8. CANDESARTAN CILEXETIL [Concomitant]
     Active Substance: CANDESARTAN CILEXETIL
     Indication: Product used for unknown indication
     Dosage: UNK
     Route: 065

REACTIONS (10)
  - Myelodysplastic syndrome [Unknown]
  - Haematological malignancy [Unknown]
  - Mental disorder [Unknown]
  - Emotional distress [Unknown]
  - Sleep disorder [Unknown]
  - Disturbance in attention [Unknown]
  - Pyrexia [Unknown]
  - Dizziness [Unknown]
  - Nausea [Unknown]
  - Fatigue [Unknown]

NARRATIVE: CASE EVENT DATE: 20180101
